FAERS Safety Report 21395739 (Version 1)
Quarter: 2022Q3

REPORT INFORMATION
  Report Type: Spontaneous
  Country: US (occurrence: None)
  Receive Date: 20220929
  Receipt Date: 20220929
  Transmission Date: 20221027
  Serious: Yes (Death)
  Sender: FDA-Public Use
  Company Number: None

PATIENT
  Age: 76 Year
  Sex: 0

DRUGS (1)
  1. CYCLOSPORINE MODIFIED [Suspect]
     Active Substance: CYCLOSPORINE
     Indication: Renal transplant
     Dosage: OTHER FREQUENCY : 100MG AM, 75MG  PM;?
     Route: 048
     Dates: start: 20170309

REACTIONS (1)
  - Death [None]

NARRATIVE: CASE EVENT DATE: 20220926
